FAERS Safety Report 20093286 (Version 2)
Quarter: 2021Q4

REPORT INFORMATION
  Report Type: Spontaneous
  Country: PT (occurrence: PT)
  Receive Date: 20211120
  Receipt Date: 20211129
  Transmission Date: 20220303
  Serious: Yes (Life-Threatening, Hospitalization, Other)
  Sender: FDA-Public Use
  Company Number: PT-009507513-2111PRT005567

PATIENT
  Age: 76 Year
  Sex: Male

DRUGS (2)
  1. BCG LIVE [Suspect]
     Active Substance: BACILLUS CALMETTE-GUERIN SUBSTRAIN TICE LIVE ANTIGEN
     Indication: Bladder transitional cell carcinoma
     Dosage: 81MG, ONCE WEEKLY FOR A 6-WEEK INDUCTION COURSE FOLLOWED BY ONCE WEEKLY FOR A 3-WEEK MAINTENANCE DOS
     Route: 043
     Dates: start: 20170314
  2. SODIUM CHLORIDE [Concomitant]
     Active Substance: SODIUM CHLORIDE
     Dosage: VIAL 100 ML INTRAVENOUS 50 ML
     Dates: start: 20170314

REACTIONS (1)
  - Disseminated Bacillus Calmette-Guerin infection [Recovered/Resolved]
